FAERS Safety Report 5523336-X (Version None)
Quarter: 2007Q4

REPORT INFORMATION
  Report Type: 
  Country: None (occurrence: None)
  Receive Date: 20071121
  Receipt Date: 20071116
  Transmission Date: 20080405
  Serious: Yes (Hospitalization)
  Sender: FDA-Public Use
  Company Number: B0206972A

PATIENT
  Age: 93 Year
  Sex: Male

DRUGS (5)
  1. AUGMENTIN [Suspect]
     Dosage: 500MG THREE TIMES PER DAY
     Route: 048
     Dates: start: 19970726, end: 19970811
  2. AUGMENTIN '125' [Suspect]
     Dosage: 12G SINGLE DOSE
     Route: 042
     Dates: start: 19970722, end: 19970726
  3. PROZAC [Concomitant]
     Dosage: 20MG PER DAY
     Route: 048
     Dates: start: 19970716, end: 19970812
  4. CIPROFLOXACIN HCL [Concomitant]
     Dosage: 1.6MG PER DAY
     Route: 042
     Dates: start: 19970722, end: 19970726
  5. CIPROFLOXACIN HCL [Concomitant]
     Dosage: 500MG TWICE PER DAY
     Route: 048
     Dates: start: 19970726, end: 19970811

REACTIONS (3)
  - AGRANULOCYTOSIS [None]
  - DIABETES MELLITUS INADEQUATE CONTROL [None]
  - ESCHAR [None]
